FAERS Safety Report 8769811 (Version 1)
Quarter: 2012Q4

REPORT INFORMATION
  Report Type: 
  Country: US (occurrence: US)
  Receive Date: 20120905
  Receipt Date: 20120905
  Transmission Date: 20130627
  Serious: No
  Sender: FDA-Public Use
  Company Number: US-009507513-1208USA010890

PATIENT

DRUGS (1)
  1. JANUMET [Suspect]
     Dosage: 50/1000 mg, bid
     Route: 048

REACTIONS (2)
  - Drug dose omission [Unknown]
  - Headache [Unknown]
